FAERS Safety Report 16821175 (Version 2)
Quarter: 2019Q4

REPORT INFORMATION
  Report Type: Spontaneous
  Country: US (occurrence: US)
  Receive Date: 20190918
  Receipt Date: 20191105
  Transmission Date: 20200122
  Serious: Yes (Hospitalization)
  Sender: FDA-Public Use
  Company Number: US-CELGENEUS-USA-20190904333

PATIENT
  Age: 63 Year
  Sex: Female
  Weight: 77 kg

DRUGS (70)
  1. ACYCLOVIR. [Concomitant]
     Active Substance: ACYCLOVIR
     Route: 065
  2. VITAMIN D [Concomitant]
     Active Substance: VITAMIN D NOS
     Route: 065
  3. BIOTIN [Concomitant]
     Active Substance: BIOTIN
     Route: 065
  4. BIOTIN [Concomitant]
     Active Substance: BIOTIN
     Route: 065
  5. ASPIRIN. [Concomitant]
     Active Substance: ASPIRIN
     Route: 065
  6. ATORVASTATIN [Concomitant]
     Active Substance: ATORVASTATIN
     Route: 065
  7. DEXAMETHASONE. [Concomitant]
     Active Substance: DEXAMETHASONE
     Indication: PRODUCT USED FOR UNKNOWN INDICATION
     Route: 065
  8. METOCLOPRAM [Concomitant]
     Active Substance: METOCLOPRAMIDE
     Route: 065
  9. VELCADE [Concomitant]
     Active Substance: BORTEZOMIB
     Route: 065
  10. ACYCLOVIR. [Concomitant]
     Active Substance: ACYCLOVIR
     Route: 065
  11. ACYCLOVIR. [Concomitant]
     Active Substance: ACYCLOVIR
     Route: 065
  12. PROTONIX [Concomitant]
     Active Substance: PANTOPRAZOLE SODIUM
     Route: 065
  13. ATENOLOL. [Concomitant]
     Active Substance: ATENOLOL
     Indication: PRODUCT USED FOR UNKNOWN INDICATION
     Route: 065
  14. MELATONIN [Concomitant]
     Active Substance: MELATONIN
     Route: 065
  15. VITAMIN C [Concomitant]
     Active Substance: ASCORBIC ACID
     Route: 065
  16. METOCLOPRAM [Concomitant]
     Active Substance: METOCLOPRAMIDE
     Route: 065
  17. POTASSIUM [Concomitant]
     Active Substance: POTASSIUM
     Route: 065
  18. REVLIMID [Suspect]
     Active Substance: LENALIDOMIDE
     Dosage: 10 MILLIGRAM
     Route: 048
     Dates: start: 20190130, end: 20190905
  19. PROTONIX [Concomitant]
     Active Substance: PANTOPRAZOLE SODIUM
     Route: 065
  20. ATENOLOL. [Concomitant]
     Active Substance: ATENOLOL
     Route: 065
  21. VITAMIN D [Concomitant]
     Active Substance: VITAMIN D NOS
     Indication: PRODUCT USED FOR UNKNOWN INDICATION
     Route: 065
  22. FUROSEMIDE. [Concomitant]
     Active Substance: FUROSEMIDE
     Indication: PRODUCT USED FOR UNKNOWN INDICATION
     Route: 065
  23. ASPIRIN. [Concomitant]
     Active Substance: ASPIRIN
     Indication: PRODUCT USED FOR UNKNOWN INDICATION
     Route: 065
  24. ASPIRIN. [Concomitant]
     Active Substance: ASPIRIN
     Route: 065
  25. ATORVASTATIN [Concomitant]
     Active Substance: ATORVASTATIN
     Route: 065
  26. ZOFRAN [Concomitant]
     Active Substance: ONDANSETRON HYDROCHLORIDE
     Route: 065
  27. DEXAMETHASONE. [Concomitant]
     Active Substance: DEXAMETHASONE
     Route: 065
  28. REVLIMID [Suspect]
     Active Substance: LENALIDOMIDE
     Indication: PLASMA CELL MYELOMA
     Dosage: 10 MILLIGRAM
     Route: 048
     Dates: start: 20180928, end: 20190130
  29. ATENOLOL. [Concomitant]
     Active Substance: ATENOLOL
     Route: 065
  30. VITAMIN C [Concomitant]
     Active Substance: ASCORBIC ACID
     Indication: PRODUCT USED FOR UNKNOWN INDICATION
     Route: 065
  31. ATORVASTATIN [Concomitant]
     Active Substance: ATORVASTATIN
     Indication: PRODUCT USED FOR UNKNOWN INDICATION
     Route: 065
  32. ATORVASTATIN [Concomitant]
     Active Substance: ATORVASTATIN
     Route: 065
  33. ZOFRAN [Concomitant]
     Active Substance: ONDANSETRON HYDROCHLORIDE
     Indication: PRODUCT USED FOR UNKNOWN INDICATION
     Route: 065
  34. ZOFRAN [Concomitant]
     Active Substance: ONDANSETRON HYDROCHLORIDE
     Route: 065
  35. METOCLOPRAM [Concomitant]
     Active Substance: METOCLOPRAMIDE
     Indication: PRODUCT USED FOR UNKNOWN INDICATION
     Route: 065
  36. VELCADE [Concomitant]
     Active Substance: BORTEZOMIB
     Route: 065
  37. PROTONIX [Concomitant]
     Active Substance: PANTOPRAZOLE SODIUM
     Route: 065
  38. ATENOLOL. [Concomitant]
     Active Substance: ATENOLOL
     Route: 065
  39. VITAMIN D [Concomitant]
     Active Substance: VITAMIN D NOS
     Route: 065
  40. BIOTIN [Concomitant]
     Active Substance: BIOTIN
     Indication: PRODUCT USED FOR UNKNOWN INDICATION
     Route: 065
  41. BIOTIN [Concomitant]
     Active Substance: BIOTIN
     Route: 065
  42. FUROSEMIDE. [Concomitant]
     Active Substance: FUROSEMIDE
     Route: 065
  43. NOVOLOG [Concomitant]
     Active Substance: INSULIN ASPART
     Route: 065
  44. ASPIRIN. [Concomitant]
     Active Substance: ASPIRIN
     Route: 065
  45. ZOFRAN [Concomitant]
     Active Substance: ONDANSETRON HYDROCHLORIDE
     Route: 065
  46. LEVOTHYROXINE. [Concomitant]
     Active Substance: LEVOTHYROXINE
     Route: 065
  47. POTASSIUM [Concomitant]
     Active Substance: POTASSIUM
     Indication: PRODUCT USED FOR UNKNOWN INDICATION
     Route: 065
  48. POTASSIUM [Concomitant]
     Active Substance: POTASSIUM
     Route: 065
  49. VELCADE [Concomitant]
     Active Substance: BORTEZOMIB
     Indication: PRODUCT USED FOR UNKNOWN INDICATION
     Route: 065
  50. VITAMIN D [Concomitant]
     Active Substance: VITAMIN D NOS
     Route: 065
  51. MELATONIN [Concomitant]
     Active Substance: MELATONIN
     Route: 065
  52. NOVOLOG [Concomitant]
     Active Substance: INSULIN ASPART
     Route: 065
  53. DEXAMETHASONE. [Concomitant]
     Active Substance: DEXAMETHASONE
     Route: 065
  54. LEVOTHYROXINE. [Concomitant]
     Active Substance: LEVOTHYROXINE
     Route: 065
  55. POTASSIUM [Concomitant]
     Active Substance: POTASSIUM
     Route: 065
  56. VELCADE [Concomitant]
     Active Substance: BORTEZOMIB
     Route: 065
  57. DEXAMETHASONE. [Concomitant]
     Active Substance: DEXAMETHASONE
     Route: 065
  58. LEVOTHYROXINE. [Concomitant]
     Active Substance: LEVOTHYROXINE
     Indication: PRODUCT USED FOR UNKNOWN INDICATION
     Route: 065
  59. LEVOTHYROXINE. [Concomitant]
     Active Substance: LEVOTHYROXINE
     Route: 065
  60. METOCLOPRAM [Concomitant]
     Active Substance: METOCLOPRAMIDE
     Route: 065
  61. ACYCLOVIR. [Concomitant]
     Active Substance: ACYCLOVIR
     Indication: PRODUCT USED FOR UNKNOWN INDICATION
     Route: 065
  62. PROTONIX [Concomitant]
     Active Substance: PANTOPRAZOLE SODIUM
     Indication: PRODUCT USED FOR UNKNOWN INDICATION
     Route: 065
  63. FUROSEMIDE. [Concomitant]
     Active Substance: FUROSEMIDE
     Route: 065
  64. FUROSEMIDE. [Concomitant]
     Active Substance: FUROSEMIDE
     Route: 065
  65. MELATONIN [Concomitant]
     Active Substance: MELATONIN
     Indication: PRODUCT USED FOR UNKNOWN INDICATION
     Route: 065
  66. MELATONIN [Concomitant]
     Active Substance: MELATONIN
     Route: 065
  67. NOVOLOG [Concomitant]
     Active Substance: INSULIN ASPART
     Indication: PRODUCT USED FOR UNKNOWN INDICATION
     Route: 065
  68. NOVOLOG [Concomitant]
     Active Substance: INSULIN ASPART
     Route: 065
  69. VITAMIN C [Concomitant]
     Active Substance: ASCORBIC ACID
     Route: 065
  70. VITAMIN C [Concomitant]
     Active Substance: ASCORBIC ACID
     Route: 065

REACTIONS (5)
  - Peripheral swelling [Unknown]
  - Neuropathy peripheral [Unknown]
  - White blood cell count decreased [Unknown]
  - Platelet count decreased [Not Recovered/Not Resolved]
  - Full blood count decreased [Not Recovered/Not Resolved]

NARRATIVE: CASE EVENT DATE: 20190905
